FAERS Safety Report 9177636 (Version 1)
Quarter: 2012Q4

REPORT INFORMATION
  Report Type: 
  Country: US (occurrence: US)
  Receive Date: 20121005
  Receipt Date: 20121005
  Transmission Date: 20130627
  Serious: Yes (Other)
  Sender: FDA-Public Use
  Company Number: US-RB-045120-12

PATIENT
  Age: 0 None
  Sex: Female

DRUGS (4)
  1. SUBOXONE [Suspect]
     Indication: PAIN MANAGEMENT
     Route: 064
     Dates: end: 2011
  2. METHADONE [Suspect]
     Indication: PAIN MANAGEMENT
     Route: 064
     Dates: start: 2011, end: 20110729
  3. FENTANYL [Suspect]
     Indication: PAIN MANAGEMENT
     Dosage: 50mg/2 days
     Route: 064
     Dates: end: 20110729
  4. PERCOCET [Suspect]
     Indication: PAIN MANAGEMENT
     Route: 064
     Dates: end: 20110729

REACTIONS (3)
  - Premature baby [Recovered/Resolved]
  - Jaundice neonatal [Unknown]
  - Foetal exposure during pregnancy [Recovered/Resolved]
